FAERS Safety Report 15515477 (Version 1)
Quarter: 2018Q4

REPORT INFORMATION
  Report Type: Spontaneous
  Country: US (occurrence: US)
  Receive Date: 20181017
  Receipt Date: 20181017
  Transmission Date: 20190205
  Serious: No
  Sender: FDA-Public Use
  Company Number: US-BIOGEN-2018BI00643012

PATIENT
  Age: 74 Year
  Sex: Female

DRUGS (1)
  1. AVONEX [Suspect]
     Active Substance: INTERFERON BETA-1A
     Indication: MULTIPLE SCLEROSIS
     Route: 030
     Dates: end: 20180904

REACTIONS (9)
  - Pollakiuria [Unknown]
  - Urine output decreased [Unknown]
  - General physical health deterioration [Unknown]
  - Product dose omission [Unknown]
  - Weight increased [Unknown]
  - Paraesthesia [Unknown]
  - Impaired driving ability [Unknown]
  - Peripheral swelling [Unknown]
  - Feeling abnormal [Unknown]

NARRATIVE: CASE EVENT DATE: 20180904
